FAERS Safety Report 23443906 (Version 2)
Quarter: 2024Q2

REPORT INFORMATION
  Report Type: Spontaneous
  Country: US (occurrence: US)
  Receive Date: 20240125
  Receipt Date: 20240502
  Transmission Date: 20240715
  Serious: Yes (Death)
  Sender: FDA-Public Use
  Company Number: US-PFIZER INC-PV202400005008

PATIENT
  Age: 57 Year
  Sex: Female

DRUGS (4)
  1. BESPONSA [Suspect]
     Active Substance: INOTUZUMAB OZOGAMICIN
     Dosage: CYCLE 1: 0.6 MG/M2 D1
  2. BESPONSA [Suspect]
     Active Substance: INOTUZUMAB OZOGAMICIN
     Dosage: CYCLE 1: 0.3 MG/M2 D8
  3. BESPONSA [Suspect]
     Active Substance: INOTUZUMAB OZOGAMICIN
     Dosage: C 2-4: 0.3 MG/M2 ON D1+D8 (EVENRY 28 DAYS X 4 CYCLES)
  4. BESPONSA [Suspect]
     Active Substance: INOTUZUMAB OZOGAMICIN
     Dosage: 0.9 MG

REACTIONS (2)
  - Death [Fatal]
  - Off label use [Unknown]
